FAERS Safety Report 9365858 (Version 1)
Quarter: 2013Q2

REPORT INFORMATION
  Report Type: Spontaneous
  Country: US (occurrence: None)
  Receive Date: 20130624
  Receipt Date: 20130624
  Transmission Date: 20140414
  Serious: Yes (Other)
  Sender: FDA-Public Use
  Company Number: None

PATIENT
  Sex: Female
  Weight: 59.88 kg

DRUGS (1)
  1. PARCOPA [Suspect]
     Dosage: BEFORE 2012
     Dates: start: 2012

REACTIONS (1)
  - Nausea [None]
